FAERS Safety Report 21046535 (Version 1)
Quarter: 2022Q3

REPORT INFORMATION
  Report Type: Spontaneous
  Country: US (occurrence: US)
  Receive Date: 20220706
  Receipt Date: 20220706
  Transmission Date: 20221027
  Serious: No
  Sender: FDA-Public Use
  Company Number: US-ALKEM LABORATORIES LIMITED-US-ALKEM-2022-02518

PATIENT

DRUGS (2)
  1. SIROLIMUS [Suspect]
     Active Substance: SIROLIMUS
     Indication: Product used for unknown indication
     Dosage: TROUGH CONCENTRATION OF 5 NG/ML AT BASELINE
     Route: 065
  2. NIRMATRELVIR\RITONAVIR [Suspect]
     Active Substance: NIRMATRELVIR\RITONAVIR
     Indication: COVID-19
     Dosage: UNK
     Route: 065

REACTIONS (2)
  - COVID-19 [Unknown]
  - Drug interaction [Unknown]
